FAERS Safety Report 5393370-1 (Version None)
Quarter: 2007Q3

REPORT INFORMATION
  Report Type: 
  Country: None (occurrence: None)
  Receive Date: 20070723
  Receipt Date: 20070709
  Transmission Date: 20080115
  Serious: Yes (Hospitalization, Other)
  Sender: FDA-Public Use
  Company Number: PHEH2007US06434

PATIENT
  Age: 76 Year
  Sex: Male

DRUGS (1)
  1. ZELNORM [Suspect]
     Indication: GASTRIC DISORDER
     Dosage: 6 MG, BID
     Route: 048
     Dates: start: 20020101, end: 20070301

REACTIONS (15)
  - ASTHENIA [None]
  - CARDIAC DISORDER [None]
  - CARDIAC FLUTTER [None]
  - CEREBROVASCULAR ACCIDENT [None]
  - CHRONIC OBSTRUCTIVE PULMONARY DISEASE [None]
  - CONDITION AGGRAVATED [None]
  - CORONARY ARTERY DISEASE [None]
  - DIARRHOEA [None]
  - DIZZINESS [None]
  - DYSPNOEA [None]
  - PNEUMONIA [None]
  - RESPIRATORY DISORDER [None]
  - SURGERY [None]
  - TRANSIENT ISCHAEMIC ATTACK [None]
  - VASCULAR GRAFT [None]
